FAERS Safety Report 5195416-2 (Version None)
Quarter: 2006Q4

REPORT INFORMATION
  Report Type: 
  Country: None (occurrence: None)
  Receive Date: 20061229
  Receipt Date: 20061221
  Transmission Date: 20070319
  Serious: Yes (Other)
  Sender: FDA-Public Use
  Company Number: BR-PFIZER INC-2006156155

PATIENT
  Sex: Female

DRUGS (5)
  1. LIPITOR [Suspect]
     Indication: PROPHYLAXIS
     Route: 048
  2. MICARDIS [Concomitant]
     Route: 048
  3. ASPIRIN [Concomitant]
     Route: 048
     Dates: start: 20061204
  4. ISCOVER [Concomitant]
     Route: 048
     Dates: start: 20061204
  5. DRUG, UNSPECIFIED [Concomitant]
     Dates: start: 20061101

REACTIONS (3)
  - ANGINA PECTORIS [None]
  - ELECTROCARDIOGRAM CHANGE [None]
  - HYPERTENSION [None]
